FAERS Safety Report 4750843-X (Version None)
Quarter: 2005Q3

REPORT INFORMATION
  Report Type: 
  Country: None (occurrence: None)
  Receive Date: 20050822
  Receipt Date: 20050809
  Transmission Date: 20060218
  Serious: Yes (Other)
  Sender: FDA-Public Use
  Company Number: 2005112861

PATIENT
  Age: 53 Year
  Sex: Female
  Weight: 61.2356 kg

DRUGS (4)
  1. GABAPENTIN [Suspect]
     Indication: PAIN
     Dosage: 300 MG (300 MG, 1 IN 1 D)
     Dates: start: 20020101
  2. SYNTHROID [Concomitant]
  3. TIZANIDINE HCL [Concomitant]
  4. VCODIN (HYDROCODONE BITARTRATE, PARACETAMOL) [Concomitant]

REACTIONS (6)
  - CONDITION AGGRAVATED [None]
  - FISTULA [None]
  - NERVE COMPRESSION [None]
  - PAIN [None]
  - SEDATION [None]
  - UROLOGICAL EXAMINATION ABNORMAL [None]
